FAERS Safety Report 6750564-8 (Version None)
Quarter: 2010Q2

REPORT INFORMATION
  Report Type: 
  Country: None (occurrence: None)
  Receive Date: 20100528
  Receipt Date: 20100528
  Transmission Date: 20101027
  Serious: Yes (Other)
  Sender: FDA-Public Use
  Company Number: None

PATIENT
  Age: 42 Year
  Sex: Female
  Weight: 58.0604 kg

DRUGS (2)
  1. INDOOR/OUTDOOR ALLERGY RELIEF COMPARE TO ZYRTEC CETIRIZINE HYDROCHLORI [Suspect]
     Indication: ECZEMA
     Dosage: 10MG DAILY PO 3 CONSECUTIVE MORNINGS
     Route: 048
     Dates: start: 20100522, end: 20100524
  2. INDOOR/OUTDOOR ALLERGY RELIEF COMPARE TO ZYRTEC CETIRIZINE HYDROCHLORI [Suspect]
     Indication: MULTIPLE ALLERGIES
     Dosage: 10MG DAILY PO 3 CONSECUTIVE MORNINGS
     Route: 048
     Dates: start: 20100522, end: 20100524

REACTIONS (47)
  - ABNORMAL BEHAVIOUR [None]
  - ABNORMAL DREAMS [None]
  - ANGER [None]
  - COLD SWEAT [None]
  - CONFUSIONAL STATE [None]
  - DECREASED APPETITE [None]
  - DEPRESSED MOOD [None]
  - DEPRESSION [None]
  - DETOXIFICATION [None]
  - DIZZINESS [None]
  - DRUG HYPERSENSITIVITY [None]
  - DRUG INEFFECTIVE [None]
  - DYSPHAGIA [None]
  - DYSPNOEA [None]
  - EMOTIONAL DISORDER [None]
  - FALL [None]
  - FATIGUE [None]
  - FEAR [None]
  - FEELING ABNORMAL [None]
  - FEELING OF DESPAIR [None]
  - FEELINGS OF WORTHLESSNESS [None]
  - HALLUCINATION [None]
  - HOMICIDAL IDEATION [None]
  - HYPERHIDROSIS [None]
  - INCREASED APPETITE [None]
  - INFLUENZA LIKE ILLNESS [None]
  - INSOMNIA [None]
  - IRRITABILITY [None]
  - LETHARGY [None]
  - MENTAL DISORDER [None]
  - MIGRAINE [None]
  - MOOD SWINGS [None]
  - NASAL DISCOMFORT [None]
  - NIGHTMARE [None]
  - OROPHARYNGEAL PAIN [None]
  - PALPITATIONS [None]
  - PERSONALITY CHANGE [None]
  - PRURITUS GENERALISED [None]
  - PYREXIA [None]
  - RESTLESS LEGS SYNDROME [None]
  - SOMNOLENCE [None]
  - STARVATION [None]
  - SUICIDAL IDEATION [None]
  - THROAT IRRITATION [None]
  - UNEVALUABLE EVENT [None]
  - URTICARIA [None]
  - WITHDRAWAL SYNDROME [None]
